FAERS Safety Report 8490690-9 (Version None)
Quarter: 2012Q3

REPORT INFORMATION
  Report Type: 
  Country: None (occurrence: None)
  Receive Date: 20120706
  Receipt Date: 20120627
  Transmission Date: 20120928
  Serious: Yes (Other)
  Sender: FDA-Public Use
  Company Number: US-BIOMARINP-002645

PATIENT
  Sex: Female

DRUGS (1)
  1. NAGLAZYME [Suspect]
     Indication: MUCOPOLYSACCHARIDOSIS VI
     Route: 041
     Dates: start: 20050722

REACTIONS (4)
  - INFUSION RELATED REACTION [None]
  - BLOOD MAGNESIUM DECREASED [None]
  - VENTRICULAR EXTRASYSTOLES [None]
  - POLYURIA [None]
